FAERS Safety Report 24978725 (Version 2)
Quarter: 2025Q1

REPORT INFORMATION
  Report Type: Spontaneous
  Country: US (occurrence: US)
  Receive Date: 20250218
  Receipt Date: 20250320
  Transmission Date: 20250409
  Serious: Yes (Life-Threatening, Hospitalization, Other)
  Sender: BRISTOL-MYERS SQUIBB COMPANY
  Company Number: US-BRISTOL-MYERS SQUIBB COMPANY-2025-022482

PATIENT
  Age: 81 Year
  Sex: Male

DRUGS (1)
  1. LENALIDOMIDE [Suspect]
     Active Substance: LENALIDOMIDE
     Indication: Plasma cell myeloma
     Dosage: TAKE 1 CAPSULE (25MG) BY MOUTH WITH WATER EVERY DAY ON DAYS 1-21, THEN OFF 7 DAYS. DO NOT CRUSH OR O
     Route: 048

REACTIONS (3)
  - Pneumonia [Recovered/Resolved]
  - White blood cell count decreased [Not Recovered/Not Resolved]
  - Full blood count decreased [Recovered/Resolved]
